FAERS Safety Report 9947084 (Version 1)
Quarter: 2014Q1

REPORT INFORMATION
  Report Type: Report from Study
  Country: US (occurrence: US)
  Receive Date: 20140303
  Receipt Date: 20140303
  Transmission Date: 20141002
  Serious: No
  Sender: FDA-Public Use
  Company Number: US-ABBVIE-13P-163-1061865-00

PATIENT
  Age: 76 Year
  Sex: Male
  Weight: 94.43 kg

DRUGS (8)
  1. HUMIRA [Suspect]
     Indication: RHEUMATOID ARTHRITIS
     Dates: start: 2007
  2. NORVASC [Concomitant]
     Indication: HYPERTENSION
  3. BENICAR [Concomitant]
     Indication: HYPERTENSION
  4. NEXIUM [Concomitant]
     Indication: GASTROOESOPHAGEAL REFLUX DISEASE
  5. POTASSIUM [Concomitant]
     Indication: MINERAL SUPPLEMENTATION
  6. CYMBALTA [Concomitant]
     Indication: DEPRESSION
  7. JALYN [Concomitant]
     Indication: BENIGN PROSTATIC HYPERPLASIA
  8. VITAMINS [Concomitant]
     Indication: VITAMIN SUPPLEMENTATION

REACTIONS (2)
  - Myalgia [Not Recovered/Not Resolved]
  - Fatigue [Not Recovered/Not Resolved]
